FAERS Safety Report 14657064 (Version 1)
Quarter: 2018Q1

REPORT INFORMATION
  Report Type: Spontaneous
  Country: DE (occurrence: DE)
  Receive Date: 20180319
  Receipt Date: 20180319
  Transmission Date: 20180509
  Serious: Yes (Hospitalization, Other)
  Sender: FDA-Public Use
  Company Number: DE-PFIZER INC-2016182996

PATIENT
  Age: 71 Year
  Sex: Male

DRUGS (22)
  1. TAVOR (LORAZEPAM) [Interacting]
     Active Substance: LORAZEPAM
     Dosage: 2.5 MG, UNK
     Dates: start: 20130116
  2. TAVOR (LORAZEPAM) [Interacting]
     Active Substance: LORAZEPAM
     Dosage: 1.5 MG, UNK
     Dates: start: 20130117, end: 20130123
  3. ABILIFY [Interacting]
     Active Substance: ARIPIPRAZOLE
     Dosage: 5 MG, UNK
     Dates: start: 20130104, end: 20130106
  4. ERGENYL CHRONO [Concomitant]
     Active Substance: VALPROIC ACID
     Dosage: 600 MG, UNK
     Dates: start: 20130103
  5. AKINETON [Concomitant]
     Active Substance: BIPERIDEN HYDROCHLORIDE
     Dosage: 4 MG, UNK
     Dates: start: 20130110
  6. ERGENYL CHRONO [Concomitant]
     Active Substance: VALPROIC ACID
     Dosage: 1200 MG, UNK
     Dates: start: 20130104, end: 20130129
  7. AKINETON [Concomitant]
     Active Substance: BIPERIDEN HYDROCHLORIDE
     Dosage: 4 MG, UNK
     Dates: start: 20130116, end: 20130130
  8. TAVOR (LORAZEPAM) [Interacting]
     Active Substance: LORAZEPAM
     Dosage: 3 MG, UNK
     Dates: start: 20130110, end: 20130115
  9. ABILIFY [Interacting]
     Active Substance: ARIPIPRAZOLE
     Dosage: 10 MG, UNK
     Dates: start: 20130117, end: 20130120
  10. ZYPREXA [Interacting]
     Active Substance: OLANZAPINE
     Dosage: 20 MG, UNK
     Dates: end: 20130108
  11. AKINETON [Concomitant]
     Active Substance: BIPERIDEN HYDROCHLORIDE
     Dosage: 2 MG, UNK
     Dates: start: 20130131, end: 20130206
  12. ABILIFY [Interacting]
     Active Substance: ARIPIPRAZOLE
     Dosage: 15 MG, UNK
     Dates: start: 20130112, end: 20130116
  13. ERGENYL CHRONO [Concomitant]
     Active Substance: VALPROIC ACID
     Dosage: 2000 MG, UNK
  14. TAVOR (LORAZEPAM) [Suspect]
     Active Substance: LORAZEPAM
     Dosage: 1 MG, UNK
     Dates: start: 20130103, end: 20130108
  15. ABILIFY [Interacting]
     Active Substance: ARIPIPRAZOLE
     Dosage: 15 MG, UNK
     Dates: start: 20130110
  16. AKINETON [Concomitant]
     Active Substance: BIPERIDEN HYDROCHLORIDE
     Dosage: 2 MG, UNK
     Dates: start: 20130104, end: 20130109
  17. AKINETON [Concomitant]
     Active Substance: BIPERIDEN HYDROCHLORIDE
     Dosage: 8 MG, UNK
     Dates: start: 20130111, end: 20130115
  18. TAVOR (LORAZEPAM) [Interacting]
     Active Substance: LORAZEPAM
     Dosage: 1.5 MG, UNK
     Dates: start: 20130109
  19. ABILIFY [Interacting]
     Active Substance: ARIPIPRAZOLE
     Dosage: 10 MG, UNK
     Dates: start: 20130107, end: 20130109
  20. ABILIFY [Interacting]
     Active Substance: ARIPIPRAZOLE
     Dosage: 20 MG, UNK
     Dates: start: 20130111
  21. ZYPREXA [Interacting]
     Active Substance: OLANZAPINE
     Dosage: 15 MG, UNK
     Dates: start: 20130109, end: 20130217
  22. AKINETON [Concomitant]
     Active Substance: BIPERIDEN HYDROCHLORIDE
     Dosage: UNK

REACTIONS (2)
  - Parkinsonism [Unknown]
  - Drug interaction [Unknown]

NARRATIVE: CASE EVENT DATE: 20130116
